FAERS Safety Report 26113984 (Version 1)
Quarter: 2025Q4

REPORT INFORMATION
  Report Type: Spontaneous
  Country: US (occurrence: US)
  Receive Date: 20251202
  Receipt Date: 20251202
  Transmission Date: 20260118
  Serious: No
  Sender: ABBVIE
  Company Number: US-ABBVIE-6572232

PATIENT

DRUGS (2)
  1. BOTOX [Suspect]
     Active Substance: ONABOTULINUMTOXINA
     Indication: Headache
     Dosage: TIME INTERVAL: AS NECESSARY: BOTOX 100 UNIT VIAL ?FORM STRENGTH- 100 UNITS?BOTOX THERAPEUTIC
  2. BOTOX [Suspect]
     Active Substance: ONABOTULINUMTOXINA
     Indication: Headache
     Dosage: TIME INTERVAL: AS NECESSARY: BOTOX 200 UNIT VIAL?FORM STRENGTH- 200 UNITS?BOTOX THERAPEUTIC
     Route: 065

REACTIONS (1)
  - Product temperature excursion issue [Unknown]
